FAERS Safety Report 22201572 (Version 1)
Quarter: 2023Q2

REPORT INFORMATION
  Report Type: Report from Study
  Country: US (occurrence: None)
  Receive Date: 20230412
  Receipt Date: 20230412
  Transmission Date: 20230722
  Serious: Yes (Death)
  Sender: FDA-Public Use
  Company Number: 2023A083819

PATIENT
  Sex: Male

DRUGS (1)
  1. DALIRESP [Suspect]
     Active Substance: ROFLUMILAST
     Dosage: 250MCG TABLET (TAKE 2 TABLETS BY MOUTH EVERY MONDAY, WEDNESDAY, AND FRIDAY
     Route: 048

REACTIONS (1)
  - Death [Fatal]
